FAERS Safety Report 17283688 (Version 1)
Quarter: 2020Q1

REPORT INFORMATION
  Report Type: Report from Study
  Country: None (occurrence: AU)
  Receive Date: 20200117
  Receipt Date: 20200117
  Transmission Date: 20200409
  Serious: Yes (Hospitalization)
  Sender: FDA-Public Use
  Company Number: AU-ABBVIE-20K-008-3231977-00

PATIENT
  Sex: Male

DRUGS (1)
  1. LUCRIN DEPOT [Suspect]
     Active Substance: LEUPROLIDE ACETATE
     Indication: PROSTATE CANCER
     Route: 030
     Dates: start: 20190805

REACTIONS (4)
  - Brain neoplasm malignant [Recovering/Resolving]
  - Bone disorder [Not Recovered/Not Resolved]
  - Asthenia [Recovering/Resolving]
  - Weight increased [Not Recovered/Not Resolved]
